FAERS Safety Report 17313856 (Version 1)
Quarter: 2020Q1

REPORT INFORMATION
  Report Type: Spontaneous
  Country: US (occurrence: US)
  Receive Date: 20200107
  Receipt Date: 20200107
  Transmission Date: 20200409
  Serious: Yes (Hospitalization)
  Sender: FDA-Public Use
  Company Number: None

PATIENT
  Sex: Female
  Weight: 71.2 kg

DRUGS (4)
  1. VINCRISTINE SULFATE. [Concomitant]
     Active Substance: VINCRISTINE SULFATE
  2. MERCAPTOPURINE. [Suspect]
     Active Substance: MERCAPTOPURINE
  3. DEXAMETHASONE. [Suspect]
     Active Substance: DEXAMETHASONE
  4. METHOTREXATE. [Concomitant]
     Active Substance: METHOTREXATE

REACTIONS (6)
  - Rhinovirus infection [None]
  - Cough [None]
  - Chills [None]
  - Febrile neutropenia [None]
  - Enterovirus test positive [None]
  - Nausea [None]

NARRATIVE: CASE EVENT DATE: 20191225
